FAERS Safety Report 24121969 (Version 6)
Quarter: 2025Q3

REPORT INFORMATION
  Report Type: Report from Study
  Country: CN (occurrence: CN)
  Receive Date: 20240722
  Receipt Date: 20250923
  Transmission Date: 20251020
  Serious: Yes (Other)
  Sender: ROCHE
  Company Number: CN-ROCHE-3573367

PATIENT
  Age: 81 Year
  Sex: Male
  Weight: 70.9 kg

DRUGS (32)
  1. POLATUZUMAB VEDOTIN [Suspect]
     Active Substance: POLATUZUMAB VEDOTIN
     Indication: Diffuse large B-cell lymphoma
     Route: 042
     Dates: start: 20231203, end: 20231203
  2. POLATUZUMAB VEDOTIN [Suspect]
     Active Substance: POLATUZUMAB VEDOTIN
     Route: 042
     Dates: start: 20240123, end: 20240123
  3. POLATUZUMAB VEDOTIN [Suspect]
     Active Substance: POLATUZUMAB VEDOTIN
     Route: 042
     Dates: start: 20240222, end: 20240222
  4. RITUXIMAB [Suspect]
     Active Substance: RITUXIMAB
     Indication: Diffuse large B-cell lymphoma
     Route: 042
     Dates: start: 20231202, end: 20231202
  5. RITUXIMAB [Suspect]
     Active Substance: RITUXIMAB
     Route: 042
     Dates: start: 20231226, end: 20231226
  6. RITUXIMAB [Suspect]
     Active Substance: RITUXIMAB
     Dosage: START DATE OF MOST RECENT DOSE OF STUDY DRUG 21-FEB-2024
     Route: 042
     Dates: start: 20240122, end: 20240122
  7. RITUXIMAB [Suspect]
     Active Substance: RITUXIMAB
     Route: 042
     Dates: start: 20240412, end: 20240412
  8. RITUXIMAB [Suspect]
     Active Substance: RITUXIMAB
     Route: 042
     Dates: start: 20240221, end: 20240221
  9. LENALIDOMIDE [Suspect]
     Active Substance: LENALIDOMIDE
     Indication: Diffuse large B-cell lymphoma
     Route: 048
     Dates: start: 20231203, end: 20231212
  10. LENALIDOMIDE [Suspect]
     Active Substance: LENALIDOMIDE
     Route: 048
     Dates: start: 20240123, end: 20240201
  11. LENALIDOMIDE [Suspect]
     Active Substance: LENALIDOMIDE
     Route: 048
     Dates: start: 20240222, end: 20240302
  12. ZANUBRUTINIB [Suspect]
     Active Substance: ZANUBRUTINIB
     Indication: Diffuse large B-cell lymphoma
     Route: 048
     Dates: start: 20231202, end: 20231225
  13. ZANUBRUTINIB [Suspect]
     Active Substance: ZANUBRUTINIB
     Route: 048
     Dates: start: 20240221, end: 20240517
  14. ZANUBRUTINIB [Suspect]
     Active Substance: ZANUBRUTINIB
     Route: 048
     Dates: start: 20240122, end: 20240220
  15. Omeprazole enteric-coated capsules [Concomitant]
  16. METHYLPREDNISOLONE SODIUM SUCCINATE [Concomitant]
     Active Substance: METHYLPREDNISOLONE SODIUM SUCCINATE
  17. Reduced glutathione for injection [Concomitant]
  18. Compound acetaminophen tablets [Concomitant]
  19. Promethazine hydrochloride inj [Concomitant]
  20. LEUCOGEN [Concomitant]
     Active Substance: LEUCOGEN
  21. FEBUXOSTAT [Concomitant]
     Active Substance: FEBUXOSTAT
  22. sulfonamide tablets [Concomitant]
  23. Glutathione tablets [Concomitant]
  24. SODIUM BICARBONATE [Concomitant]
     Active Substance: SODIUM BICARBONATE
  25. ATORVASTATIN CALCIUM [Concomitant]
     Active Substance: ATORVASTATIN CALCIUM
  26. TORSEMIDE [Concomitant]
     Active Substance: TORSEMIDE
     Indication: Polyuria
  27. Human insulin inj [Concomitant]
  28. PREDNISONE ACETATE [Concomitant]
     Active Substance: PREDNISONE ACETATE
  29. INSULIN ASPART [Concomitant]
     Active Substance: INSULIN ASPART
  30. SULFAMETHOXAZOLE [Concomitant]
     Active Substance: SULFAMETHOXAZOLE
  31. CEFACLOR [Concomitant]
     Active Substance: CEFACLOR
  32. CALCIUM CHLORIDE\POTASSIUM CHLORIDE\SODIUM CHLORIDE\SODIUM LACTATE [Concomitant]
     Active Substance: CALCIUM CHLORIDE\POTASSIUM CHLORIDE\SODIUM CHLORIDE\SODIUM LACTATE

REACTIONS (7)
  - Hyperkalaemia [Recovered/Resolved]
  - Platelet count decreased [Recovered/Resolved]
  - White blood cell count decreased [Recovered/Resolved]
  - Asthenia [Not Recovered/Not Resolved]
  - Hypoproteinaemia [Unknown]
  - Neutrophil count decreased [Recovered/Resolved]
  - Fatigue [Unknown]

NARRATIVE: CASE EVENT DATE: 20231225
